FAERS Safety Report 5530888-2 (Version None)
Quarter: 2007Q4

REPORT INFORMATION
  Report Type: 
  Country: None (occurrence: None)
  Receive Date: 20071130
  Receipt Date: 20071120
  Transmission Date: 20080405
  Serious: Yes (Death)
  Sender: FDA-Public Use
  Company Number: US-PURDUE-USA_2007_0029973

PATIENT
  Age: 64 Year
  Sex: Male
  Weight: 88 kg

DRUGS (4)
  1. OXYCONTIN [Suspect]
     Indication: BACK PAIN
     Dosage: 80 MG, Q12H
     Route: 048
     Dates: start: 20060821, end: 20071018
  2. LORCET [Concomitant]
     Indication: BREAKTHROUGH PAIN
     Dosage: 10 MG, Q12H PRN
     Dates: start: 20070209, end: 20071018
  3. LISINOPRIL AND HYDROCHLOROTHIAZIDE [Concomitant]
     Indication: HYPERTENSION
     Dosage: 20/12.5, DAILY
     Route: 048
     Dates: start: 20070309, end: 20071018
  4. KLONOPIN [Concomitant]
     Indication: ANXIETY
     Dosage: .5 MG, TID

REACTIONS (2)
  - ARRHYTHMIA [None]
  - MYOCARDIAL INFARCTION [None]
